FAERS Safety Report 19162017 (Version 2)
Quarter: 2021Q2

REPORT INFORMATION
  Report Type: Spontaneous
  Country: US (occurrence: US)
  Receive Date: 20210421
  Receipt Date: 20210421
  Transmission Date: 20210717
  Serious: Yes (Other)
  Sender: FDA-Public Use
  Company Number: US-CELGENEUS-USA-20210402455

PATIENT
  Age: 80 Year
  Sex: Female
  Weight: 65.83 kg

DRUGS (3)
  1. POMALYST [Suspect]
     Active Substance: POMALIDOMIDE
     Indication: MYELODYSPLASTIC SYNDROME
     Dosage: 2 MILLIGRAM
     Route: 048
     Dates: start: 202101
  2. REBLOZYL [Suspect]
     Active Substance: LUSPATERCEPT-AAMT
     Indication: ANAEMIA OF MALIGNANT DISEASE
     Route: 065
     Dates: start: 2020
  3. POMALYST [Suspect]
     Active Substance: POMALIDOMIDE
     Indication: OFF LABEL USE

REACTIONS (8)
  - Myalgia [Unknown]
  - Haemoglobin decreased [Unknown]
  - Weight increased [Unknown]
  - Muscle spasms [Unknown]
  - Dyspnoea [Unknown]
  - Product dose omission issue [Unknown]
  - Blood glucose increased [Unknown]
  - Blood cholesterol increased [Unknown]

NARRATIVE: CASE EVENT DATE: 202102
